FAERS Safety Report 8761963 (Version 2)
Quarter: 2012Q4

REPORT INFORMATION
  Report Type: 
  Country: US (occurrence: US)
  Receive Date: 20120830
  Receipt Date: 20121217
  Transmission Date: 20130627
  Serious: Yes (Hospitalization, Other)
  Sender: FDA-Public Use
  Company Number: US-ELI_LILLY_AND_COMPANY-US201206006061

PATIENT
  Age: 70 None
  Sex: Female
  Weight: 113.38 kg

DRUGS (13)
  1. BYDUREON [Suspect]
     Indication: TYPE 2 DIABETES MELLITUS
     Dosage: 2 mg, weekly (1/W)
     Route: 058
     Dates: start: 20120320
  2. BYDUREON [Suspect]
     Dosage: 2 mg, weekly (1/W)
     Route: 058
  3. BYDUREON [Suspect]
     Dosage: 2 mg, weekly (1/W)
     Route: 058
     Dates: end: 20120821
  4. BYETTA [Concomitant]
     Indication: TYPE 2 DIABETES MELLITUS
     Dosage: 5 ug, tid
     Route: 058
  5. TRIAMTERENE [Concomitant]
     Indication: HYPERTENSION
     Dosage: UNK
  6. LISINOPRIL                              /USA/ [Concomitant]
     Indication: HYPERTENSION
     Dosage: 40 mg, UNK
  7. WELLBUTRIN [Concomitant]
     Dosage: 100 mg, each morning
  8. WELLBUTRIN [Concomitant]
     Dosage: 200 mg, each evening
  9. LOVAZA [Concomitant]
     Dosage: 1000 mg, bid
  10. OMEPRAZOLE [Concomitant]
     Dosage: 20 mg, UNK
  11. DABIGATRAN ETEXILATE [Concomitant]
     Indication: ATRIAL FIBRILLATION
     Dosage: 150 mg, bid
     Route: 048
     Dates: start: 201206
  12. DYAZIDE [Concomitant]
     Dosage: 1 DF, UNK
  13. LIPOIC ACID [Concomitant]
     Dosage: UNK

REACTIONS (7)
  - Atrial fibrillation [Unknown]
  - Dehydration [Recovered/Resolved]
  - Malaise [Unknown]
  - Intentional drug misuse [Unknown]
  - Hypertension [Unknown]
  - Injection site nodule [Not Recovered/Not Resolved]
  - Diarrhoea [Not Recovered/Not Resolved]
